FAERS Safety Report 14462395 (Version 4)
Quarter: 2018Q2

REPORT INFORMATION
  Report Type: Spontaneous
  Country: US (occurrence: US)
  Receive Date: 20180130
  Receipt Date: 20180420
  Transmission Date: 20180711
  Serious: Yes (Hospitalization, Disabling, Other)
  Sender: FDA-Public Use
  Company Number: US-ACTELION-A-NJ2018-166521

PATIENT
  Age: 71 Year
  Sex: Female

DRUGS (2)
  1. DILTIAZEM. [Concomitant]
     Active Substance: DILTIAZEM
  2. TRACLEER [Suspect]
     Active Substance: BOSENTAN
     Indication: PULMONARY ARTERIAL HYPERTENSION
     Dosage: 125 MG, BID
     Route: 048
     Dates: start: 2000

REACTIONS (20)
  - Arthralgia [Unknown]
  - Arthritis [Unknown]
  - Constipation [Unknown]
  - Asthenia [Unknown]
  - Fatigue [Not Recovered/Not Resolved]
  - Finger amputation [Unknown]
  - Nasal congestion [Unknown]
  - Dysuria [Unknown]
  - Anaemia [Unknown]
  - Malaise [Unknown]
  - Heart rate irregular [Unknown]
  - Eating disorder [Unknown]
  - Influenza like illness [Not Recovered/Not Resolved]
  - Dialysis [Unknown]
  - Transfusion [Unknown]
  - Respiratory tract infection [Unknown]
  - Dyspnoea [Not Recovered/Not Resolved]
  - Cough [Not Recovered/Not Resolved]
  - Pruritus [Unknown]
  - Weight decreased [Unknown]
